FAERS Safety Report 5795399-8 (Version None)
Quarter: 2008Q2

REPORT INFORMATION
  Report Type: 
  Country: None (occurrence: None)
  Receive Date: 20080630
  Receipt Date: 20080620
  Transmission Date: 20081010
  Serious: Yes (Other)
  Sender: FDA-Public Use
  Company Number: JP-PFIZER INC-2008045256

PATIENT
  Sex: Female

DRUGS (14)
  1. ZITHROMAX [Suspect]
     Indication: PHARYNGOLARYNGEAL PAIN
     Dosage: DAILY DOSE:500MG
     Route: 048
     Dates: start: 20080401, end: 20080403
  2. LOXONIN [Concomitant]
     Route: 048
     Dates: start: 20080325, end: 20080328
  3. CLARITHROMYCIN [Concomitant]
     Route: 048
     Dates: start: 20080325, end: 20080328
  4. NORVASC [Concomitant]
     Indication: HYPERTENSION
     Route: 048
  5. VALSARTAN [Concomitant]
  6. FLUITRAN [Concomitant]
     Dates: start: 20071120, end: 20080405
  7. SIMVASTATIN [Concomitant]
     Dates: start: 20071106
  8. TALION [Concomitant]
     Dates: start: 20080325, end: 20080405
  9. MONTELUKAST SODIUM [Concomitant]
     Dates: start: 20080401, end: 20080403
  10. HOKUNALIN [Concomitant]
     Dates: start: 20080401, end: 20080403
  11. CODEINE SUL TAB [Concomitant]
     Dates: start: 20080401, end: 20080403
  12. RESPLEN [Concomitant]
     Dates: start: 20080325, end: 20080328
  13. MUCODYNE [Concomitant]
     Dates: start: 20080325, end: 20080328
  14. THEOLONG [Concomitant]
     Dates: start: 20080401, end: 20080403

REACTIONS (1)
  - HAEMOLYTIC ANAEMIA [None]
